FAERS Safety Report 10097343 (Version 2)
Quarter: 2014Q2

REPORT INFORMATION
  Report Type: Spontaneous
  Country: FR (occurrence: FR)
  Receive Date: 20140423
  Receipt Date: 20140430
  Transmission Date: 20141212
  Serious: Yes (Death, Hospitalization, Other)
  Sender: FDA-Public Use
  Company Number: FR-GILEAD-2014-0100415

PATIENT
  Age: 69 Year
  Sex: Male
  Weight: 68 kg

DRUGS (3)
  1. SOVALDI [Suspect]
     Indication: HEPATITIS C
     Dosage: 1 DF, QD
     Route: 048
     Dates: start: 20140331, end: 20140404
  2. REBETOL [Concomitant]
     Indication: HEPATITIS C
     Dosage: 1200 MG, QD
     Route: 048
     Dates: start: 20140331, end: 20140404
  3. MEDROL                             /00049601/ [Concomitant]
     Indication: B-CELL LYMPHOMA
     Dosage: 32 MG, UNK
     Route: 048
     Dates: start: 20140220, end: 20140407

REACTIONS (1)
  - Respiratory distress [Fatal]
